FAERS Safety Report 24823569 (Version 1)
Quarter: 2025Q1

REPORT INFORMATION
  Report Type: Spontaneous
  Country: US (occurrence: US)
  Receive Date: 20250109
  Receipt Date: 20250109
  Transmission Date: 20250409
  Serious: No
  Sender: GLAXOSMITHKLINE
  Company Number: US-GSKCCFUS-Case-02184368_AE-120150

PATIENT
  Age: 31 Year
  Sex: Female

DRUGS (2)
  1. BENLYSTA [Suspect]
     Active Substance: BELIMUMAB
     Indication: Product used for unknown indication
     Route: 058
     Dates: start: 202404
  2. IMMUNOGLOBULINS [Concomitant]
     Indication: Product used for unknown indication
     Route: 042
     Dates: start: 2022

REACTIONS (1)
  - Contraindicated product administered [Unknown]
